FAERS Safety Report 5226763-3 (Version None)
Quarter: 2007Q1

REPORT INFORMATION
  Report Type: 
  Country: None (occurrence: None)
  Receive Date: 20070201
  Receipt Date: 20070124
  Transmission Date: 20070707
  Serious: Yes (Hospitalization)
  Sender: FDA-Public Use
  Company Number: CA-GILEAD-2007-0011097

PATIENT
  Sex: Female

DRUGS (17)
  1. VIREAD [Suspect]
     Indication: HIV INFECTION
  2. AMBISOME [Suspect]
     Indication: OESOPHAGEAL CANDIDIASIS
  3. DARUNAVIR [Suspect]
     Indication: HIV INFECTION
     Route: 048
     Dates: start: 20061116
  4. TMC125 [Suspect]
     Route: 048
     Dates: start: 20061116
  5. RITONAVIR [Suspect]
     Indication: HIV INFECTION
     Dates: start: 20061116
  6. AMIKACIN [Suspect]
     Indication: MYCOBACTERIUM AVIUM COMPLEX INFECTION
  7. LAMIVUDINE [Concomitant]
     Indication: HIV INFECTION
     Route: 048
     Dates: start: 20061116
  8. LAMIVUDINE [Concomitant]
     Dates: start: 20061225
  9. PREDNISOLONE [Concomitant]
     Indication: IMMUNE RECONSTITUTION SYNDROME
     Route: 048
     Dates: start: 20061127
  10. CLOBAZAM [Concomitant]
     Indication: CONVULSION
     Route: 048
     Dates: start: 20030101
  11. CLARITHROMYCIN [Concomitant]
     Indication: MYCOBACTERIUM AVIUM COMPLEX INFECTION
     Route: 048
     Dates: start: 20050520
  12. RIFABUTIN [Concomitant]
     Indication: MYCOBACTERIUM AVIUM COMPLEX INFECTION
     Route: 048
     Dates: start: 20050520
  13. ETHAMBUTOL HYDROCHLORIDE [Concomitant]
     Indication: MYCOBACTERIUM AVIUM COMPLEX INFECTION
     Route: 048
     Dates: start: 20040604
  14. ATOVAQUONE [Concomitant]
     Indication: ANTIFUNGAL PROPHYLAXIS
     Route: 048
     Dates: start: 20000726
  15. ATOVAQUONE [Concomitant]
     Indication: TOXOPLASMOSIS PROPHYLAXIS
  16. IMMUNE GLOBULIN INTRAVENOUS (HUMAN) [Concomitant]
     Indication: SINOBRONCHITIS
     Route: 041
     Dates: start: 20000101
  17. FLUCONAZOLE [Concomitant]
     Indication: OESOPHAGEAL CANDIDIASIS
     Route: 048
     Dates: start: 20061112

REACTIONS (2)
  - IMMUNE RECONSTITUTION SYNDROME [None]
  - RENAL FAILURE [None]
